FAERS Safety Report 4654466-2 (Version None)
Quarter: 2005Q2

REPORT INFORMATION
  Report Type: 
  Country: None (occurrence: None)
  Receive Date: 20050404
  Receipt Date: 20050107
  Transmission Date: 20051028
  Serious: No
  Sender: FDA-Public Use
  Company Number: USA050187735

PATIENT
  Age: 61 Year
  Sex: Female

DRUGS (7)
  1. CYMBALTA [Suspect]
     Indication: NEUROPATHIC PAIN
     Dosage: 20 MG DAY
     Dates: start: 20041231
  2. FLUVOXAMINE MALEATE [Concomitant]
  3. OXYCONTIN [Concomitant]
  4. NEXIUM [Concomitant]
  5. LEVOXYL [Concomitant]
  6. TRAZADONE (TRAZODONE) [Concomitant]
  7. ASPIRIN [Concomitant]

REACTIONS (7)
  - ANOREXIA [None]
  - ARACHNOIDITIS [None]
  - FATIGUE [None]
  - HYPERSOMNIA [None]
  - INSOMNIA [None]
  - PRURITUS [None]
  - SOMNOLENCE [None]
